FAERS Safety Report 9336395 (Version 1)
Quarter: 2013Q2

REPORT INFORMATION
  Report Type: Spontaneous
  Country: US (occurrence: US)
  Receive Date: 20130607
  Receipt Date: 20130607
  Transmission Date: 20140414
  Serious: No
  Sender: FDA-Public Use
  Company Number: US-009507513-1306USA000553

PATIENT
  Age: 8 Year
  Sex: Male
  Weight: 27.21 kg

DRUGS (1)
  1. CLARITIN CHEWABLE TABLETS [Suspect]
     Indication: HYPERSENSITIVITY
     Dosage: 10 MG, QPM
     Route: 048
     Dates: start: 20130520

REACTIONS (1)
  - Expired drug administered [Recovering/Resolving]
